FAERS Safety Report 23374654 (Version 2)
Quarter: 2024Q1

REPORT INFORMATION
  Report Type: Report from Study
  Country: GB (occurrence: GB)
  Receive Date: 20240105
  Receipt Date: 20240116
  Transmission Date: 20240409
  Serious: Yes (Other)
  Sender: FDA-Public Use
  Company Number: GB-NOVPHSZ-PHHY2019GB076656

PATIENT
  Sex: Male

DRUGS (1)
  1. ERELZI [Suspect]
     Active Substance: ETANERCEPT-SZZS
     Indication: Rheumatoid arthritis
     Dosage: 50 MG, QW (PREFILLED PEN)
     Route: 058
     Dates: start: 20190122

REACTIONS (7)
  - Hepatic infection [Not Recovered/Not Resolved]
  - Bile duct stone [Unknown]
  - Cholelithiasis [Unknown]
  - Blood test abnormal [Unknown]
  - Viral infection [Unknown]
  - COVID-19 [Not Recovered/Not Resolved]
  - Product dose omission issue [Unknown]
